FAERS Safety Report 4779736-9 (Version None)
Quarter: 2005Q3

REPORT INFORMATION
  Report Type: 
  Country: None (occurrence: None)
  Receive Date: 20050914
  Receipt Date: 20050127
  Transmission Date: 20060218
  Serious: Yes (Hospitalization, Other)
  Sender: FDA-Public Use
  Company Number: 163-20785-04110091

PATIENT
  Age: 60 Year
  Sex: Female
  Weight: 68.4 kg

DRUGS (15)
  1. THALOMID [Suspect]
     Indication: NON-SMALL CELL LUNG CANCER
     Dosage: 200 MG, QHS, ORAL; 100 MG, DAILY, ORAL
     Route: 048
     Dates: start: 20040706, end: 20041210
  2. THALOMID [Suspect]
     Indication: NON-SMALL CELL LUNG CANCER
     Dosage: 200 MG, QHS, ORAL; 100 MG, DAILY, ORAL
     Route: 048
     Dates: start: 20041221
  3. DOCETAXEL (DOCTAXEL) [Suspect]
     Indication: NON-SMALL CELL LUNG CANCER
     Dosage: SEE IMAGE
     Dates: start: 20040713
  4. AMITRIPTYLINE HCL [Concomitant]
  5. COMPAZINE [Concomitant]
  6. LASIX [Concomitant]
  7. DEXAMETHASONE [Concomitant]
  8. BENZONATATE [Concomitant]
  9. BENADRYL (CLONALIN) [Concomitant]
  10. PEPCID [Concomitant]
  11. METFORMIN [Concomitant]
  12. GLIPIZIDE XL (GLIPIZIDE ) [Concomitant]
  13. ALBUTEROL [Concomitant]
  14. ATROVENT [Concomitant]
  15. PREDNISONE TAPER (PREDNISONE) [Concomitant]

REACTIONS (7)
  - CHRONIC OBSTRUCTIVE PULMONARY DISEASE [None]
  - DIABETES MELLITUS NON-INSULIN-DEPENDENT [None]
  - DYSPNOEA [None]
  - HYPERGLYCAEMIA [None]
  - PHLEBITIS [None]
  - UPPER RESPIRATORY TRACT INFECTION [None]
  - VOMITING [None]
